FAERS Safety Report 16755134 (Version 2)
Quarter: 2019Q3

REPORT INFORMATION
  Report Type: Spontaneous
  Country: JP (occurrence: JP)
  Receive Date: 20190829
  Receipt Date: 20190920
  Transmission Date: 20191005
  Serious: Yes (Other)
  Sender: FDA-Public Use
  Company Number: JP-GLAXOSMITHKLINE-JP2019JPN122900

PATIENT
  Age: 80 Year
  Sex: Female

DRUGS (4)
  1. MENESIT [Concomitant]
     Active Substance: CARBIDOPA\LEVODOPA
     Indication: PARKINSON^S DISEASE
     Dosage: 350 MG, 1D
  2. NEUPRO [Concomitant]
     Active Substance: ROTIGOTINE
     Dosage: 9 MG, 1D
  3. COMTAN [Concomitant]
     Active Substance: ENTACAPONE
     Indication: PARKINSON^S DISEASE
     Dosage: 300 MG, 1D
  4. REQUIP [Suspect]
     Active Substance: ROPINIROLE HYDROCHLORIDE
     Indication: PARKINSON^S DISEASE
     Dosage: 8 MG, QD
     Route: 048

REACTIONS (5)
  - Parkinson^s disease [Unknown]
  - Dysphagia [Unknown]
  - Product use complaint [Unknown]
  - Vomiting [Unknown]
  - Dementia Alzheimer^s type [Unknown]

NARRATIVE: CASE EVENT DATE: 20190705
